FAERS Safety Report 13330418 (Version 2)
Quarter: 2017Q1

REPORT INFORMATION
  Report Type: Report from Study
  Country: BR (occurrence: BR)
  Receive Date: 20170314
  Receipt Date: 20170327
  Transmission Date: 20170428
  Serious: Yes (Other)
  Sender: FDA-Public Use
  Company Number: BR-ROCHE-1904714

PATIENT
  Age: 67 Year
  Sex: Female
  Weight: 54 kg

DRUGS (4)
  1. AVASTIN [Suspect]
     Active Substance: BEVACIZUMAB
     Indication: OVARIAN CANCER
     Dosage: 6TH CYCLE COMPLETED ON 12/JUL/2016
     Route: 042
     Dates: start: 20160312, end: 20160712
  2. AVASTIN [Suspect]
     Active Substance: BEVACIZUMAB
     Dosage: 17 CYCLES RECEIVED
     Route: 042
     Dates: end: 20170115
  3. CARBOPLATIN. [Concomitant]
     Active Substance: CARBOPLATIN
     Indication: OVARIAN CANCER
     Route: 065
     Dates: end: 20160712
  4. TAXOL [Concomitant]
     Active Substance: PACLITAXEL
     Indication: OVARIAN CANCER
     Route: 065
     Dates: end: 20160712

REACTIONS (2)
  - Drug ineffective [Unknown]
  - Disease progression [Unknown]
